FAERS Safety Report 16428743 (Version 1)
Quarter: 2019Q2

REPORT INFORMATION
  Report Type: Spontaneous
  Country: US (occurrence: US)
  Receive Date: 20190613
  Receipt Date: 20190613
  Transmission Date: 20190711
  Serious: Yes (Other)
  Sender: FDA-Public Use
  Company Number: US-JAZZ-2014-US-006672

PATIENT
  Age: 57 Year
  Sex: Female
  Weight: 83.45 kg

DRUGS (7)
  1. XYREM [Suspect]
     Active Substance: SODIUM OXYBATE
     Dosage: 3.5 G, BID
     Route: 048
     Dates: start: 200902, end: 2010
  2. FENTANYL. [Concomitant]
     Active Substance: FENTANYL
     Indication: PAIN
  3. CYMBALTA [Concomitant]
     Active Substance: DULOXETINE HYDROCHLORIDE
  4. XYREM [Suspect]
     Active Substance: SODIUM OXYBATE
     Indication: NARCOLEPSY
     Dosage: 2.25 G, BID
     Route: 048
     Dates: start: 200809
  5. NEURONTIN [Concomitant]
     Active Substance: GABAPENTIN
  6. XYREM [Suspect]
     Active Substance: SODIUM OXYBATE
     Indication: SOMNOLENCE
     Dosage: DOSE ADJUSTMENTS
     Route: 048
  7. TRAMADOL. [Concomitant]
     Active Substance: TRAMADOL

REACTIONS (3)
  - Gastric bypass [Recovered/Resolved]
  - Sleep apnoea syndrome [Not Recovered/Not Resolved]
  - Weight decreased [Recovered/Resolved]

NARRATIVE: CASE EVENT DATE: 20091110
